FAERS Safety Report 4866678-3 (Version None)
Quarter: 2005Q4

REPORT INFORMATION
  Report Type: 
  Country: None (occurrence: None)
  Receive Date: 20051221
  Receipt Date: 20051213
  Transmission Date: 20060501
  Serious: Yes (Other)
  Sender: FDA-Public Use
  Company Number: 2005168170

PATIENT
  Age: 25 Year
  Sex: Female
  Weight: 62 kg

DRUGS (2)
  1. DEPO-PROVERA [Suspect]
     Indication: ILL-DEFINED DISORDER
     Dosage: SEE IMAGE, INTRAMUSCULAR
     Route: 030
     Dates: start: 20050913, end: 20050913
  2. DEPO-PROVERA [Suspect]
     Indication: ILL-DEFINED DISORDER
     Dosage: SEE IMAGE, INTRAMUSCULAR
     Route: 030
     Dates: start: 20051201, end: 20051201

REACTIONS (4)
  - CHEST DISCOMFORT [None]
  - DYSPNOEA [None]
  - PARAESTHESIA [None]
  - SNEEZING [None]
